FAERS Safety Report 20434146 (Version 3)
Quarter: 2022Q3

REPORT INFORMATION
  Report Type: Report from Study
  Country: DO (occurrence: DO)
  Receive Date: 20220206
  Receipt Date: 20220929
  Transmission Date: 20221027
  Serious: Yes (Death, Other)
  Sender: FDA-Public Use
  Company Number: DO-NOVARTISPH-NVSC2022DO021954

PATIENT
  Sex: Female

DRUGS (2)
  1. KISQALI [Suspect]
     Active Substance: RIBOCICLIB
     Indication: Breast cancer
     Dosage: 600 MG, QD
     Route: 048
     Dates: start: 2021, end: 202207
  2. KISQALI [Suspect]
     Active Substance: RIBOCICLIB
     Dosage: 600 MG, QD (DISPERSIBLE TABLET)
     Route: 048
     Dates: start: 20220127

REACTIONS (6)
  - Death [Fatal]
  - Pleural effusion [Unknown]
  - Procedural pain [Unknown]
  - Malaise [Unknown]
  - Vomiting [Unknown]
  - Asthenia [Unknown]
